FAERS Safety Report 17776151 (Version 3)
Quarter: 2020Q2

REPORT INFORMATION
  Report Type: Spontaneous
  Country: US (occurrence: US)
  Receive Date: 20200513
  Receipt Date: 20200615
  Transmission Date: 20200714
  Serious: No
  Sender: FDA-Public Use
  Company Number: US-PFIZER INC-2020134401

PATIENT
  Age: 52 Year
  Sex: Male

DRUGS (1)
  1. SUTENT [Suspect]
     Active Substance: SUNITINIB MALATE
     Indication: RENAL CANCER
     Dosage: 50 MG, CYCLIC (ONCE A DAY FOR 14 DAYS, 7 DAYS REST, EVERY 21 DAYS CYCLE)
     Route: 048

REACTIONS (3)
  - Hyperhidrosis [Unknown]
  - Neoplasm progression [Unknown]
  - Dizziness [Unknown]
